FAERS Safety Report 19098349 (Version 1)
Quarter: 2021Q2

REPORT INFORMATION
  Report Type: Spontaneous
  Country: BR (occurrence: BR)
  Receive Date: 20210406
  Receipt Date: 20210406
  Transmission Date: 20210717
  Serious: Yes (Death, Hospitalization)
  Sender: FDA-Public Use
  Company Number: NVSC2021BR075394

PATIENT
  Age: 32 Year
  Sex: Female

DRUGS (2)
  1. MEKINIST [Suspect]
     Active Substance: TRAMETINIB DIMETHYL SULFOXIDE
     Indication: PRODUCT USED FOR UNKNOWN INDICATION
     Dosage: UNK
     Route: 065
     Dates: start: 201807
  2. TAFINLAR [Suspect]
     Active Substance: DABRAFENIB MESYLATE
     Indication: PRODUCT USED FOR UNKNOWN INDICATION
     Dosage: UNK
     Route: 065
     Dates: start: 201807

REACTIONS (13)
  - Pyrexia [Unknown]
  - Death [Fatal]
  - Seizure [Unknown]
  - Depressed level of consciousness [Unknown]
  - Osteolysis [Unknown]
  - Rash [Unknown]
  - Breast pain [Unknown]
  - Pulmonary mass [Unknown]
  - Central nervous system lesion [Unknown]
  - Skin mass [Unknown]
  - Arthritis [Unknown]
  - Adnexa uteri mass [Unknown]
  - Breast inflammation [Unknown]

NARRATIVE: CASE EVENT DATE: 20180928
